FAERS Safety Report 20305902 (Version 2)
Quarter: 2022Q3

REPORT INFORMATION
  Report Type: Spontaneous
  Country: US (occurrence: US)
  Receive Date: 20220106
  Receipt Date: 20220831
  Transmission Date: 20221027
  Serious: No
  Sender: FDA-Public Use
  Company Number: US-MYLANLABS-2021M1098114

PATIENT
  Age: 12 Year
  Sex: Female
  Weight: 22.68 kg

DRUGS (2)
  1. CYSTAGON [Suspect]
     Active Substance: CYSTEAMINE BITARTRATE
     Indication: Chronic kidney disease
     Dosage: 300 MILLIGRAM, Q6H
     Route: 048
     Dates: start: 201112
  2. CYSTAGON [Suspect]
     Active Substance: CYSTEAMINE BITARTRATE
     Indication: Cystinosis

REACTIONS (1)
  - Weight increased [Unknown]
